FAERS Safety Report 4950888-0 (Version None)
Quarter: 2006Q1

REPORT INFORMATION
  Report Type: 
  Country: None (occurrence: None)
  Receive Date: 20060316
  Receipt Date: 20060307
  Transmission Date: 20060701
  Serious: Yes (Death)
  Sender: FDA-Public Use
  Company Number: HQWYE444720JAN06

PATIENT
  Age: 14 Year
  Sex: Female

DRUGS (5)
  1. EFFEXOR XR [Suspect]
     Indication: DEPRESSION
     Dosage: SEE IMAGE
     Route: 048
     Dates: start: 20040812, end: 20040924
  2. EFFEXOR XR [Suspect]
     Indication: DEPRESSION
     Dosage: SEE IMAGE
     Route: 048
     Dates: start: 20040925, end: 20041001
  3. STILNOX (ZOLPIDEM) [Concomitant]
  4. ENDEP [Concomitant]
  5. DIANE-35 ED (CYPROTERONE ACETATE/ETHINYLESTRADIOL) [Concomitant]

REACTIONS (17)
  - ABNORMAL BEHAVIOUR [None]
  - AGGRESSION [None]
  - AGITATION [None]
  - ANGER [None]
  - COMPLETED SUICIDE [None]
  - DEPRESSED MOOD [None]
  - DEPRESSION [None]
  - EMOTIONAL DISORDER [None]
  - FAMILY STRESS [None]
  - INJURY ASPHYXIATION [None]
  - MENTAL DISORDER [None]
  - OVERDOSE [None]
  - PAIN [None]
  - PHYSICAL ASSAULT [None]
  - SELF INJURIOUS BEHAVIOUR [None]
  - TREATMENT NONCOMPLIANCE [None]
  - VERBAL ABUSE [None]
